FAERS Safety Report 6465810-8 (Version None)
Quarter: 2009Q4

REPORT INFORMATION
  Report Type: 
  Country: None (occurrence: None)
  Receive Date: 20091201
  Receipt Date: 20081107
  Transmission Date: 20100525
  Serious: No
  Sender: FDA-Public Use
  Company Number: US-AMGEN-KDL318018

PATIENT
  Sex: Female

DRUGS (2)
  1. ENBREL [Suspect]
     Indication: RHEUMATOID ARTHRITIS
     Route: 058
     Dates: start: 20060501
  2. ENBREL [Suspect]
     Indication: PSORIASIS

REACTIONS (4)
  - CATARACT [None]
  - NASOPHARYNGITIS [None]
  - PSORIASIS [None]
  - URINARY INCONTINENCE [None]
